FAERS Safety Report 4382990-9 (Version None)
Quarter: 2004Q2

REPORT INFORMATION
  Report Type: 
  Country: None (occurrence: None)
  Receive Date: 20040622
  Receipt Date: 20040616
  Transmission Date: 20050107
  Serious: Yes (Life-Threatening, Hospitalization, Other)
  Sender: FDA-Public Use
  Company Number: 03-12-1567

PATIENT
  Age: 23 Year
  Sex: Male
  Weight: 68.9467 kg

DRUGS (2)
  1. CLOZAPINE [Suspect]
     Indication: SCHIZOPHRENIA
     Dosage: 300MG QHS ORAL
     Route: 048
     Dates: start: 20020913, end: 20031212
  2. RANITIDINE [Concomitant]

REACTIONS (18)
  - ANAEMIA [None]
  - APALLIC SYNDROME [None]
  - AUTONOMIC NEUROPATHY [None]
  - BACTERAEMIA [None]
  - BRAIN STEM INFARCTION [None]
  - CEREBRAL INFARCTION [None]
  - CEREBROVASCULAR ACCIDENT [None]
  - COMA [None]
  - CONVULSION [None]
  - ENCEPHALOPATHY [None]
  - HYPERCOAGULATION [None]
  - MALNUTRITION [None]
  - NUCLEAR MAGNETIC RESONANCE IMAGING BRAIN ABNORMAL [None]
  - PNEUMONIA [None]
  - PNEUMONIA ASPIRATION [None]
  - RESPIRATORY FAILURE [None]
  - URINARY TRACT INFECTION [None]
  - VIRAL INFECTION [None]
